FAERS Safety Report 20140005 (Version 1)
Quarter: 2021Q4

REPORT INFORMATION
  Report Type: Spontaneous
  Country: US (occurrence: None)
  Receive Date: 20211201
  Receipt Date: 20211201
  Transmission Date: 20220303
  Serious: Yes (Disabling)
  Sender: FDA-Public Use
  Company Number: None

PATIENT
  Age: 63 Year
  Sex: Female
  Weight: 72 kg

DRUGS (1)
  1. REPATHA [Suspect]
     Active Substance: EVOLOCUMAB
     Indication: Blood cholesterol increased
     Dosage: FREQUENCY : EVERY OTHER WEEK;?
     Route: 058
     Dates: start: 20200528, end: 20201118

REACTIONS (7)
  - Myalgia [None]
  - Arthralgia [None]
  - Pain in extremity [None]
  - Muscle fatigue [None]
  - Gait disturbance [None]
  - Product communication issue [None]
  - Product complaint [None]

NARRATIVE: CASE EVENT DATE: 20201118
